FAERS Safety Report 7413645-1 (Version None)
Quarter: 2011Q2

REPORT INFORMATION
  Report Type: 
  Country: None (occurrence: None)
  Receive Date: 20110413
  Receipt Date: 20110331
  Transmission Date: 20111010
  Serious: Yes (Death)
  Sender: FDA-Public Use
  Company Number: IT-CELGENEUS-083-21880-11031565

PATIENT
  Sex: Male
  Weight: 74 kg

DRUGS (5)
  1. CYTARABINE [Suspect]
     Dosage: 40 MILLIGRAM
     Route: 058
     Dates: start: 20100605, end: 20100619
  2. URBASON [Concomitant]
     Route: 065
     Dates: start: 20100529, end: 20100705
  3. ANTRA [Concomitant]
     Indication: PROPHYLAXIS
     Dosage: 40 MILLIGRAM
     Route: 065
     Dates: start: 20100529, end: 20100705
  4. REVLIMID [Suspect]
     Dosage: 10 MILLIGRAM
     Route: 048
     Dates: start: 20100605, end: 20100626
  5. CIPROXIN [Concomitant]
     Indication: INFECTION
     Dosage: 400 MILLIGRAM
     Route: 065
     Dates: start: 20100612, end: 20100705

REACTIONS (2)
  - ACUTE MYELOID LEUKAEMIA [None]
  - NO THERAPEUTIC RESPONSE [None]
